FAERS Safety Report 5324842-3 (Version None)
Quarter: 2007Q2

REPORT INFORMATION
  Report Type: 
  Country: None (occurrence: None)
  Receive Date: 20070515
  Receipt Date: 20070504
  Transmission Date: 20071010
  Serious: Yes (Life-Threatening, Hospitalization)
  Sender: FDA-Public Use
  Company Number: CH-JNJFOC-20070501693

PATIENT
  Age: 79 Year
  Sex: Male
  Weight: 79 kg

DRUGS (6)
  1. GALANTAMINE HYDROBROMIDE [Suspect]
     Indication: DEMENTIA ALZHEIMER'S TYPE
     Route: 048
  2. CITALOPRAM HYDROBROMIDE [Suspect]
     Route: 048
  3. CITALOPRAM HYDROBROMIDE [Suspect]
     Indication: DEPRESSION
     Route: 048
  4. SEROQUEL [Suspect]
     Indication: AGITATION
     Route: 048
  5. SEROQUEL [Suspect]
     Indication: RESTLESSNESS
     Route: 048
  6. BIOFLORIN [Concomitant]
     Indication: ENTEROCOCCAL INFECTION
     Route: 048

REACTIONS (6)
  - ATRIOVENTRICULAR BLOCK FIRST DEGREE [None]
  - BRADYCARDIA [None]
  - BUNDLE BRANCH BLOCK LEFT [None]
  - HYPOTENSION [None]
  - MAJOR DEPRESSION [None]
  - SUICIDAL IDEATION [None]
